FAERS Safety Report 8178147-6 (Version None)
Quarter: 2012Q1

REPORT INFORMATION
  Report Type: 
  Country: None (occurrence: None)
  Receive Date: 20120301
  Receipt Date: 20120227
  Transmission Date: 20120608
  Serious: Yes (Death, Other)
  Sender: FDA-Public Use
  Company Number: CHPA2012US003688

PATIENT
  Age: 27 Year
  Sex: Female

DRUGS (3)
  1. DIPHENHYDRAMINE HCL [Suspect]
     Dosage: UNK, UNK
  2. CITALOPRAM HYDROBROMIDE [Suspect]
     Dosage: UNK, UNK
  3. MORPHINE [Suspect]
     Dosage: UNK, UNK

REACTIONS (2)
  - DRUG ABUSE [None]
  - CARDIO-RESPIRATORY ARREST [None]
